FAERS Safety Report 10386706 (Version 1)
Quarter: 2014Q3

REPORT INFORMATION
  Report Type: Spontaneous
  Country: US (occurrence: None)
  Receive Date: 20140814
  Receipt Date: 20140814
  Transmission Date: 20150326
  Serious: No
  Sender: FDA-Public Use
  Company Number: None

PATIENT
  Age: 34 Year
  Sex: Female

DRUGS (1)
  1. TYSABRI [Suspect]
     Active Substance: NATALIZUMAB

REACTIONS (12)
  - Confusional state [None]
  - Hemiparesis [None]
  - Trigeminal neuralgia [None]
  - Asthenia [None]
  - Dysstasia [None]
  - Laceration [None]
  - Fatigue [None]
  - Communication disorder [None]
  - Abasia [None]
  - Amnesia [None]
  - Haematoma [None]
  - Fall [None]

NARRATIVE: CASE EVENT DATE: 20140804
